FAERS Safety Report 14149086 (Version 4)
Quarter: 2018Q1

REPORT INFORMATION
  Report Type: Report from Study
  Country: JP (occurrence: JP)
  Receive Date: 20171101
  Receipt Date: 20180102
  Transmission Date: 20180508
  Serious: Yes (Death, Life-Threatening, Hospitalization, Disabling)
  Sender: FDA-Public Use
  Company Number: JP-ACTELION-A-CH2017-161524

PATIENT
  Age: 67 Year
  Sex: Male
  Weight: 54 kg

DRUGS (22)
  1. OPSUMIT [Suspect]
     Active Substance: MACITENTAN
     Dosage: 5 MG, QD
     Route: 048
     Dates: start: 20161005, end: 20161225
  2. ADCIRCA [Suspect]
     Active Substance: TADALAFIL
     Dosage: 20 MG, UNK
     Route: 065
     Dates: start: 20161004, end: 20161102
  3. OLMETEC [Concomitant]
     Active Substance: OLMESARTAN MEDOXOMIL
  4. LIVACT [Concomitant]
     Active Substance: AMINO ACIDS
  5. LANSOPRAZOLE. [Concomitant]
     Active Substance: LANSOPRAZOLE
  6. SPIRONOLACTONE. [Suspect]
     Active Substance: SPIRONOLACTONE
     Dosage: 25 MG, QD
     Route: 048
     Dates: start: 20161025, end: 20161026
  7. AZOSEMIDE [Concomitant]
     Active Substance: AZOSEMIDE
     Indication: PRODUCT USED FOR UNKNOWN INDICATION
     Dosage: 30 MG, OD
     Route: 065
     Dates: start: 20160813, end: 20160817
  8. FEBURIC [Concomitant]
     Active Substance: FEBUXOSTAT
  9. SAMSCA [Suspect]
     Active Substance: TOLVAPTAN
     Dosage: 7.5 MG, QD
     Route: 048
     Dates: start: 20161025, end: 20161026
  10. MIYA-BM [Concomitant]
     Active Substance: CLOSTRIDIUM BUTYRICUM SPORES STRAIN M-55
  11. ADCIRCA [Suspect]
     Active Substance: TADALAFIL
     Indication: PORTOPULMONARY HYPERTENSION
     Dosage: 20 MG, QD
     Route: 065
     Dates: start: 20160816, end: 20160821
  12. NEUMETHYCOLE [Concomitant]
  13. SAMSCA [Suspect]
     Active Substance: TOLVAPTAN
     Dosage: 11.25 MG, QD
     Route: 048
     Dates: start: 20160829, end: 20161004
  14. LAC-B [Concomitant]
     Active Substance: BIFIDOBACTERIUM SPP.
  15. MEDICON [Concomitant]
     Active Substance: DEXTROMETHORPHAN HYDROBROMIDE
  16. OPSUMIT [Suspect]
     Active Substance: MACITENTAN
     Indication: PORTOPULMONARY HYPERTENSION
     Dosage: 10 MG, QD
     Route: 048
     Dates: start: 20160826, end: 20161004
  17. ADCIRCA [Suspect]
     Active Substance: TADALAFIL
     Dosage: 40 MG, QD
     Route: 065
     Dates: start: 20160822, end: 20161003
  18. SPIRONOLACTONE. [Suspect]
     Active Substance: SPIRONOLACTONE
     Indication: CARDIAC FAILURE
     Dosage: 25 MG, QD
     Route: 048
     Dates: start: 20160818, end: 20161004
  19. BRANUTE [Concomitant]
  20. SAMSCA [Suspect]
     Active Substance: TOLVAPTAN
     Indication: PORTOPULMONARY HYPERTENSION
     Dosage: 7.5 MG, QD
     Route: 048
     Dates: start: 20160818, end: 20160828
  21. SPIRONOLACTONE. [Suspect]
     Active Substance: SPIRONOLACTONE
     Dosage: 25 MG, QD
     Route: 048
     Dates: start: 201611, end: 20161225
  22. LOPERAMIDE [Concomitant]
     Active Substance: LOPERAMIDE

REACTIONS (21)
  - Abdominal distension [Recovering/Resolving]
  - Hepatic failure [Fatal]
  - Hypoglycaemia [Recovered/Resolved]
  - Malaise [Not Recovered/Not Resolved]
  - Peritoneovenous shunt [Unknown]
  - Oedema peripheral [Recovering/Resolving]
  - Decreased appetite [Not Recovered/Not Resolved]
  - Ascites [Recovering/Resolving]
  - Depressed level of consciousness [Not Recovered/Not Resolved]
  - Hypopnoea [Not Recovered/Not Resolved]
  - Mydriasis [Fatal]
  - Portopulmonary hypertension [Fatal]
  - Pulmonary embolism [Fatal]
  - Heart rate decreased [Not Recovered/Not Resolved]
  - Cardio-respiratory arrest [Fatal]
  - Blood bilirubin increased [Not Recovered/Not Resolved]
  - Prerenal failure [Recovering/Resolving]
  - Dehydration [Recovering/Resolving]
  - Cirrhosis alcoholic [Fatal]
  - Paracentesis [Unknown]
  - Renal impairment [Recovering/Resolving]

NARRATIVE: CASE EVENT DATE: 20161003
